FAERS Safety Report 7435467-8 (Version None)
Quarter: 2011Q2

REPORT INFORMATION
  Report Type: 
  Country: None (occurrence: None)
  Receive Date: 20110425
  Receipt Date: 20110330
  Transmission Date: 20111010
  Serious: No
  Sender: FDA-Public Use
  Company Number: US-B.I. PHARMACEUTICALS,INC./RIDGEFIELD-2011-BP-09711BP

PATIENT
  Age: 59 Year
  Sex: Male

DRUGS (9)
  1. NEURONTIN [Concomitant]
     Indication: NEUROPATHY PERIPHERAL
     Route: 048
     Dates: start: 20100101
  2. RISPERDAL [Concomitant]
     Route: 048
     Dates: start: 20060101
  3. FLOMAX [Concomitant]
     Indication: BENIGN PROSTATIC HYPERPLASIA
     Route: 048
     Dates: start: 20100501
  4. ASCORBIC ACID [Concomitant]
     Indication: PROPHYLAXIS
     Route: 048
  5. REQUIP [Concomitant]
     Indication: RESTLESS LEGS SYNDROME
     Route: 048
     Dates: start: 20110101
  6. SPIRIVA [Suspect]
     Indication: CHRONIC OBSTRUCTIVE PULMONARY DISEASE
     Dosage: 18 MCG
     Route: 055
     Dates: start: 20110329
  7. DEPAKOTE [Concomitant]
     Indication: CONVULSION
     Route: 048
     Dates: start: 20000101
  8. VALIUM [Concomitant]
     Indication: ANXIETY
     Route: 048
     Dates: start: 20050101
  9. AMBIEN [Concomitant]
     Indication: SLEEP APNOEA SYNDROME
     Dosage: 10 MG
     Route: 048
     Dates: start: 20110301

REACTIONS (2)
  - FATIGUE [None]
  - DRY MOUTH [None]
